FAERS Safety Report 9275582 (Version 1)
Quarter: 2013Q2

REPORT INFORMATION
  Report Type: Spontaneous
  Country: US (occurrence: None)
  Receive Date: 20130502
  Receipt Date: 20130502
  Transmission Date: 20140414
  Serious: No
  Sender: FDA-Public Use
  Company Number: None

PATIENT
  Sex: Female

DRUGS (1)
  1. METHYLPHENIDATE ER [Suspect]
     Indication: CENTRAL NERVOUS SYSTEM STIMULATION
     Dosage: 1  - 2 DAILY
     Route: 048
     Dates: start: 20130415, end: 20130429

REACTIONS (2)
  - Drug ineffective [None]
  - Product substitution issue [None]
